FAERS Safety Report 20702288 (Version 5)
Quarter: 2022Q4

REPORT INFORMATION
  Report Type: Spontaneous
  Country: US (occurrence: US)
  Receive Date: 20220412
  Receipt Date: 20221025
  Transmission Date: 20230112
  Serious: Yes (Other)
  Sender: FDA-Public Use
  Company Number: US-BRISTOL-MYERS SQUIBB COMPANY-2022-016531

PATIENT
  Age: 75 Year
  Sex: Female

DRUGS (3)
  1. REVLIMID [Suspect]
     Active Substance: LENALIDOMIDE
     Indication: Plasma cell myeloma
     Dosage: 10 MILLIGRAM
     Route: 048
     Dates: start: 20200526
  2. REVLIMID [Suspect]
     Active Substance: LENALIDOMIDE
     Route: 048
     Dates: start: 20200526
  3. REVLIMID [Suspect]
     Active Substance: LENALIDOMIDE
     Dosage: TAKE ONE CAPSULE DAILY FOR 1-21 DAYS OF 28 DAY CYCLE
     Route: 048

REACTIONS (6)
  - Myasthenia gravis [Unknown]
  - Condition aggravated [Unknown]
  - Metamorphopsia [Unknown]
  - Muscle spasms [Unknown]
  - Heart rate decreased [Unknown]
  - Malaise [Unknown]
